FAERS Safety Report 18961386 (Version 1)
Quarter: 2021Q1

REPORT INFORMATION
  Report Type: Spontaneous
  Country: US (occurrence: US)
  Receive Date: 20210303
  Receipt Date: 20210303
  Transmission Date: 20210420
  Serious: No
  Sender: FDA-Public Use
  Company Number: US-BAUSCH-BL-2021-006186

PATIENT
  Sex: Female

DRUGS (1)
  1. TRETINOIN 0.1% CREAM [Suspect]
     Active Substance: TRETINOIN
     Indication: PRODUCT USED FOR UNKNOWN INDICATION
     Dosage: START DATE: YEARS AGO
     Route: 065

REACTIONS (2)
  - Erythema [Unknown]
  - Skin exfoliation [Unknown]
